FAERS Safety Report 7024122-4 (Version None)
Quarter: 2010Q4

REPORT INFORMATION
  Report Type: 
  Country: None (occurrence: None)
  Receive Date: 20101001
  Receipt Date: 20100917
  Transmission Date: 20110411
  Serious: No
  Sender: FDA-Public Use
  Company Number: JP-ROCHE-669381

PATIENT
  Sex: Female
  Weight: 57 kg

DRUGS (24)
  1. TOCILIZUMAB [Suspect]
     Indication: RHEUMATOID ARTHRITIS
     Route: 041
     Dates: start: 20081209, end: 20081209
  2. TOCILIZUMAB [Suspect]
     Route: 041
     Dates: start: 20090109, end: 20090109
  3. TOCILIZUMAB [Suspect]
     Route: 041
     Dates: start: 20090206, end: 20090206
  4. TOCILIZUMAB [Suspect]
     Route: 041
     Dates: start: 20090306, end: 20090306
  5. TOCILIZUMAB [Suspect]
     Route: 041
     Dates: start: 20090403, end: 20090403
  6. TOCILIZUMAB [Suspect]
     Route: 041
     Dates: start: 20090501, end: 20090501
  7. TOCILIZUMAB [Suspect]
     Route: 041
     Dates: start: 20090529, end: 20090529
  8. TOCILIZUMAB [Suspect]
     Route: 041
     Dates: start: 20090626, end: 20090626
  9. TOCILIZUMAB [Suspect]
     Route: 041
     Dates: start: 20090724, end: 20090724
  10. TOCILIZUMAB [Suspect]
     Route: 041
     Dates: start: 20090821, end: 20090821
  11. TOCILIZUMAB [Suspect]
     Route: 041
     Dates: start: 20090925, end: 20090925
  12. METHOTREXATE [Suspect]
     Indication: RHEUMATOID ARTHRITIS
     Dosage: DRUG REPORTED AS RHEUMATREX
     Route: 048
  13. AZULFIDINE [Concomitant]
     Dosage: FORM: ENTERIC
     Route: 048
  14. PREDNISOLONE [Concomitant]
     Dosage: FORM: PERORAL AGENT.
     Route: 048
     Dates: end: 20090528
  15. PREDNISOLONE [Concomitant]
     Dosage: FORM: PERORAL AGENT.
     Route: 048
     Dates: start: 20090529
  16. PREDNISOLONE [Concomitant]
     Dosage: DOSE FORM: PERORAL AGENT
     Route: 048
  17. CALFINA [Concomitant]
     Route: 048
  18. SELBEX [Concomitant]
     Dosage: FORM: PERORAL AGENT.
     Route: 048
  19. RANTAC [Concomitant]
     Route: 048
  20. NU-LOTAN [Concomitant]
     Route: 048
  21. FLUITRAN [Concomitant]
     Route: 048
  22. ADALAT [Concomitant]
     Route: 048
  23. CRESTOR [Concomitant]
     Route: 048
  24. FOLIAMIN [Concomitant]
     Dosage: FORM: PERORAL AGENT.
     Route: 048

REACTIONS (1)
  - PNEUMONIA [None]
